FAERS Safety Report 4359162-7 (Version None)
Quarter: 2004Q2

REPORT INFORMATION
  Report Type: 
  Country: None (occurrence: None)
  Receive Date: 20040512
  Receipt Date: 20040422
  Transmission Date: 20050107
  Serious: Yes (Other)
  Sender: FDA-Public Use
  Company Number: USA040465761

PATIENT
  Age: 12 Year

DRUGS (2)
  1. STRATTERA [Suspect]
  2. ZOLOFT [Concomitant]

REACTIONS (1)
  - CONVULSION [None]
